FAERS Safety Report 19835898 (Version 1)
Quarter: 2021Q3

REPORT INFORMATION
  Report Type: Spontaneous
  Country: RU (occurrence: RU)
  Receive Date: 20210916
  Receipt Date: 20210916
  Transmission Date: 20211014
  Serious: Yes (Life-Threatening, Hospitalization)
  Sender: FDA-Public Use
  Company Number: RU-DRREDDYS-SPO/RUS/21/0139688

PATIENT
  Age: 28 Year
  Sex: Female
  Weight: 60 kg

DRUGS (10)
  1. OMEZ [Suspect]
     Active Substance: OMEPRAZOLE
     Indication: ARTHRITIS REACTIVE
     Dates: start: 20191106
  2. SOLU?MEDROL [Suspect]
     Active Substance: METHYLPREDNISOLONE SODIUM SUCCINATE
     Dosage: NO. 1
     Dates: start: 20191029
  3. PLAQUENIL [Suspect]
     Active Substance: HYDROXYCHLOROQUINE SULFATE
     Dosage: INCREASING FROM 09/11/2019 TO 2 TABLETS
     Dates: start: 20191109
  4. PREDNISOLONE. [Suspect]
     Active Substance: PREDNISOLONE
     Dosage: 2 TABLETS INCREASING TO 5 TABLETS PER DAY
     Dates: start: 2019
  5. PREDNISOLONE. [Suspect]
     Active Substance: PREDNISOLONE
     Indication: ARTHRITIS REACTIVE
     Dosage: 2 TABLETS INCREASING TO 5 TABLETS PER DAY
     Dates: start: 20191029
  6. BYSTRUMGEL [Suspect]
     Active Substance: KETOPROFEN
     Indication: PRODUCT USED FOR UNKNOWN INDICATION
     Dates: start: 201910
  7. PREDNISOLONE. [Suspect]
     Active Substance: PREDNISOLONE
     Dates: start: 20191029
  8. METIPRED [Suspect]
     Active Substance: METHYLPREDNISOLONE
     Indication: ARTHRITIS REACTIVE
     Dates: start: 2019
  9. SOLU?MEDROL [Suspect]
     Active Substance: METHYLPREDNISOLONE SODIUM SUCCINATE
     Indication: ARTHRITIS REACTIVE
     Dosage: NO. 5
     Dates: start: 20191029
  10. PLAQUENIL [Suspect]
     Active Substance: HYDROXYCHLOROQUINE SULFATE
     Indication: ARTHRITIS REACTIVE
     Dates: start: 20191029, end: 20191108

REACTIONS (7)
  - Maternal exposure during pregnancy [Recovering/Resolving]
  - Multi-organ disorder [Recovering/Resolving]
  - Staphylococcal infection [Unknown]
  - Toxicity to various agents [Recovering/Resolving]
  - Conjunctivitis [Recovering/Resolving]
  - Stevens-Johnson syndrome [Recovering/Resolving]
  - Toxic epidermal necrolysis [Recovering/Resolving]

NARRATIVE: CASE EVENT DATE: 201910
